FAERS Safety Report 7934835-5 (Version None)
Quarter: 2011Q4

REPORT INFORMATION
  Report Type: 
  Country: None (occurrence: None)
  Receive Date: 20111122
  Receipt Date: 20111108
  Transmission Date: 20120403
  Serious: Yes (Hospitalization, Other)
  Sender: FDA-Public Use
  Company Number: ZA-BAYER-2011-110123

PATIENT
  Age: 7 Week
  Sex: Male

DRUGS (1)
  1. ACETYLSALICYLIC ACID SRT [Suspect]
     Indication: PRODUCT USED FOR UNKNOWN INDICATION

REACTIONS (7)
  - POISONING [None]
  - ENCEPHALOPATHY [None]
  - PYREXIA [None]
  - PALLOR [None]
  - ACIDOSIS [None]
  - SHOCK [None]
  - JAUNDICE [None]
